FAERS Safety Report 10131337 (Version 2)
Quarter: 2014Q2

REPORT INFORMATION
  Report Type: Spontaneous
  Country: US (occurrence: US)
  Receive Date: 20140428
  Receipt Date: 20140526
  Transmission Date: 20141212
  Serious: No
  Sender: FDA-Public Use
  Company Number: US-PFIZER INC-2014116540

PATIENT
  Age: 44 Year
  Sex: Male
  Weight: 77.1 kg

DRUGS (2)
  1. CHANTIX [Suspect]
     Indication: SMOKING CESSATION THERAPY
     Dosage: 0.5 MG, 1X/DAY
     Route: 048
     Dates: start: 201404, end: 201404
  2. CHANTIX [Suspect]
     Dosage: UNK
     Route: 048
     Dates: start: 201404

REACTIONS (1)
  - Nausea [Recovered/Resolved]
